FAERS Safety Report 16177013 (Version 1)
Quarter: 2019Q2

REPORT INFORMATION
  Report Type: Spontaneous
  Country: CN (occurrence: CN)
  Receive Date: 20190409
  Receipt Date: 20190409
  Transmission Date: 20190711
  Serious: Yes (Other)
  Sender: FDA-Public Use
  Company Number: CN-BAXTER-2019BAX006817

PATIENT
  Age: 48 Year
  Sex: Female
  Weight: 52 kg

DRUGS (5)
  1. METRONIDAZOLE AND SODIUM CHLORIDE INJECTION [Suspect]
     Active Substance: METRONIDAZOLE\SODIUM CHLORIDE
     Indication: PELVIC INFLAMMATORY DISEASE
     Route: 041
     Dates: start: 20190106, end: 20190107
  2. TUOSU [Suspect]
     Active Substance: ORNIDAZOLE
     Indication: PELVIC INFLAMMATORY DISEASE
     Route: 041
     Dates: start: 20190103, end: 20190105
  3. LAILIXIN [Suspect]
     Active Substance: LEVOFLOXACIN
     Indication: ANTIINFLAMMATORY THERAPY
     Dosage: METRONIDAZOLE SODIUM CHLORIDE + LEVOFLOXACIN SODIUM CHLORIDE
     Route: 041
     Dates: start: 20190106, end: 20190107
  4. LAILIXIN [Suspect]
     Active Substance: LEVOFLOXACIN
     Indication: PELVIC INFLAMMATORY DISEASE
     Dosage: ORNIDAZOLE SODIUM CHLORIDE INJECTION + LEVOFLOXACIN SODIUM CHLORIDE INJECTION
     Route: 041
     Dates: start: 20190103, end: 20190105
  5. TUOSU [Suspect]
     Active Substance: ORNIDAZOLE
     Indication: ANTIINFLAMMATORY THERAPY

REACTIONS (6)
  - Chest discomfort [Recovering/Resolving]
  - Dizziness [Recovering/Resolving]
  - Muscle rigidity [Recovering/Resolving]
  - Temperature intolerance [Recovering/Resolving]
  - Paralysis [Recovering/Resolving]
  - Nausea [Recovering/Resolving]

NARRATIVE: CASE EVENT DATE: 20190107
